FAERS Safety Report 22252850 (Version 1)
Quarter: 2023Q2

REPORT INFORMATION
  Report Type: Spontaneous
  Country: US (occurrence: US)
  Receive Date: 20230426
  Receipt Date: 20230426
  Transmission Date: 20230722
  Serious: No
  Sender: FDA-Public Use
  Company Number: US-ZENPEP LLC-2023AIMT00104

PATIENT

DRUGS (3)
  1. ZENPEP [Suspect]
     Active Substance: PANCRELIPASE AMYLASE\PANCRELIPASE LIPASE\PANCRELIPASE PROTEASE
     Indication: Pancreatic failure
     Dosage: 25,000 USP, 2/MEAL, TOTAL MAXIMUM DAILY COUNT 6 CAPS
     Route: 048
     Dates: start: 20220820
  2. ZENPEP [Suspect]
     Active Substance: PANCRELIPASE AMYLASE\PANCRELIPASE LIPASE\PANCRELIPASE PROTEASE
     Dosage: 25,000 USP, 2/MEAL TOTAL MAXIMUM DAILY COUNT 6 CAPS, LAST DOSE PRIOR EVENTS
     Route: 048
  3. ZENPEP [Suspect]
     Active Substance: PANCRELIPASE AMYLASE\PANCRELIPASE LIPASE\PANCRELIPASE PROTEASE
     Dosage: 25,000 USP, 5 PER DAY, DOSE DECREASED
     Route: 048

REACTIONS (7)
  - Urinary tract infection [Unknown]
  - Weight increased [Unknown]
  - Dermatitis contact [Unknown]
  - Rash [Unknown]
  - Product use complaint [Unknown]
  - Abdominal distension [Unknown]
  - Flatulence [Unknown]

NARRATIVE: CASE EVENT DATE: 20221001
